FAERS Safety Report 5070798-0 (Version None)
Quarter: 2006Q3

REPORT INFORMATION
  Report Type: 
  Country: None (occurrence: None)
  Receive Date: 20060801
  Receipt Date: 20060801
  Transmission Date: 20061208
  Serious: No
  Sender: FDA-Public Use
  Company Number: None

PATIENT
  Age: 50 Year
  Sex: Male
  Weight: 90.7194 kg

DRUGS (1)
  1. EFFEXOR XR [Suspect]
     Indication: DEPRESSION
     Dosage: VARYING -75 } 225- DAILY PO
     Route: 048
     Dates: start: 20050101, end: 20050715

REACTIONS (3)
  - ADVERSE DRUG REACTION [None]
  - ANORGASMIA [None]
  - MUSCLE TWITCHING [None]
